FAERS Safety Report 10932708 (Version 1)
Quarter: 2015Q1

REPORT INFORMATION
  Report Type: Spontaneous
  Country: US (occurrence: None)
  Receive Date: 20150319
  Receipt Date: 20150319
  Transmission Date: 20150721
  Serious: Yes (Disabling)
  Sender: FDA-Public Use
  Company Number: None

PATIENT
  Age: 62 Year
  Sex: Female

DRUGS (6)
  1. ESCITALOPRAM [Suspect]
     Active Substance: ESCITALOPRAM OXALATE
     Indication: ANXIETY
     Route: 048
     Dates: start: 2004, end: 20140101
  2. ALPRAZOLAM. [Concomitant]
     Active Substance: ALPRAZOLAM
  3. LIOTHYRONINE [Concomitant]
     Active Substance: LIOTHYRONINE
  4. LEVOTHYROXINE [Concomitant]
     Active Substance: LEVOTHYROXINE
  5. VITAMIN D [Concomitant]
     Active Substance: CHOLECALCIFEROL
  6. VITAMIN B12 [Concomitant]
     Active Substance: CYANOCOBALAMIN

REACTIONS (9)
  - Drug ineffective [None]
  - Tremor [None]
  - Insomnia [None]
  - Agitation [None]
  - Dizziness [None]
  - Fall [None]
  - Depression suicidal [None]
  - Drug withdrawal syndrome [None]
  - Irritability [None]

NARRATIVE: CASE EVENT DATE: 20140101
